FAERS Safety Report 8270701-6 (Version None)
Quarter: 2012Q2

REPORT INFORMATION
  Report Type: 
  Country: None (occurrence: None)
  Receive Date: 20120406
  Receipt Date: 20120328
  Transmission Date: 20120825
  Serious: Yes (Hospitalization)
  Sender: FDA-Public Use
  Company Number: 2012000069

PATIENT
  Age: 75 Year
  Sex: Male

DRUGS (2)
  1. ACETAMINOPHEN [Concomitant]
  2. ACEON [Suspect]
     Dosage: 10 MG, QD, ORAL
     Route: 048
     Dates: start: 20070101, end: 20120101

REACTIONS (2)
  - TONGUE OEDEMA [None]
  - DYSPNOEA [None]
